FAERS Safety Report 10081828 (Version 7)
Quarter: 2015Q1

REPORT INFORMATION
  Report Type: Spontaneous
  Country: US (occurrence: US)
  Receive Date: 20140416
  Receipt Date: 20150303
  Transmission Date: 20150720
  Serious: No
  Sender: FDA-Public Use
  Company Number: US-009507513-1202USA00427

PATIENT
  Sex: Male
  Weight: 84.35 kg

DRUGS (1)
  1. PROPECIA [Suspect]
     Active Substance: FINASTERIDE
     Indication: ANDROGENETIC ALOPECIA
     Dosage: 1 MG, QD
     Route: 048
     Dates: start: 20020404, end: 20030724

REACTIONS (48)
  - Hypogonadism [Unknown]
  - Secondary hypogonadism [Unknown]
  - Inappropriate schedule of drug administration [Unknown]
  - Tremor [Unknown]
  - Irritability [Unknown]
  - Breast pain [Unknown]
  - Sexual dysfunction [Not Recovered/Not Resolved]
  - Spermatic cord obstruction [Unknown]
  - Nocturia [Unknown]
  - Bronchitis [Unknown]
  - Anxiety [Unknown]
  - Hepatic cyst [Unknown]
  - Gallbladder polyp [Unknown]
  - Androgen deficiency [Unknown]
  - Cough [Unknown]
  - Productive cough [Unknown]
  - Snoring [Unknown]
  - Adverse event [Not Recovered/Not Resolved]
  - Muscular weakness [Unknown]
  - Depression [Not Recovered/Not Resolved]
  - Libido decreased [Unknown]
  - Cognitive disorder [Not Recovered/Not Resolved]
  - Chest pain [Unknown]
  - Feeling cold [Unknown]
  - Attention deficit/hyperactivity disorder [Unknown]
  - Prostatomegaly [Unknown]
  - Erectile dysfunction [Not Recovered/Not Resolved]
  - Anorgasmia [Unknown]
  - Tooth fracture [Unknown]
  - Semen volume decreased [Not Recovered/Not Resolved]
  - Gynaecomastia [Unknown]
  - Crying [Unknown]
  - Vitamin D decreased [Unknown]
  - Eczema [Unknown]
  - Tendonitis [Unknown]
  - Vasospasm [Unknown]
  - Spermatocele [Unknown]
  - Endodontic procedure [Unknown]
  - Dysphonia [Unknown]
  - Amino acid metabolism disorder [Unknown]
  - Varicocele [Unknown]
  - Cyst [Unknown]
  - Clostridium difficile infection [Unknown]
  - Adrenal insufficiency [Unknown]
  - Night sweats [Unknown]
  - Hot flush [Unknown]
  - Ligament sprain [Not Recovered/Not Resolved]
  - Nipple swelling [Unknown]

NARRATIVE: CASE EVENT DATE: 20021014
